FAERS Safety Report 8435860-0 (Version None)
Quarter: 2012Q2

REPORT INFORMATION
  Report Type: 
  Country: None (occurrence: None)
  Receive Date: 20120614
  Receipt Date: 20120530
  Transmission Date: 20120825
  Serious: Yes (Death)
  Sender: FDA-Public Use
  Company Number: US-ROCHE-1026974

PATIENT
  Sex: Male

DRUGS (2)
  1. TAXOTERE [Concomitant]
     Indication: SKIN CANCER METASTATIC
  2. HERCEPTIN [Suspect]
     Indication: SKIN CANCER METASTATIC

REACTIONS (2)
  - NEUTROPENIC SEPSIS [None]
  - DISEASE PROGRESSION [None]
